FAERS Safety Report 5972759-3 (Version None)
Quarter: 2008Q4

REPORT INFORMATION
  Report Type: 
  Country: None (occurrence: None)
  Receive Date: 20081126
  Receipt Date: 20081126
  Transmission Date: 20090506
  Serious: Yes (Hospitalization)
  Sender: FDA-Public Use
  Company Number: None

PATIENT
  Age: 35 Year
  Sex: Male
  Weight: 86.6 kg

DRUGS (14)
  1. INFLIXIMAB 435 MG IV CENTOCCOR [Suspect]
     Indication: CROHN'S DISEASE
     Dosage: 435 MG IV ONE TIME IV
     Route: 042
     Dates: start: 20080904, end: 20080904
  2. ACETAMINOPHEN [Concomitant]
  3. ALBUTEROL [Concomitant]
  4. BEDESONIDE [Concomitant]
  5. CIPROFLOXACIN [Concomitant]
  6. DIPEHNHYDRAMINE [Concomitant]
  7. HYDROCODONE BITARTRATE + ACETAMINOPHEN [Concomitant]
  8. LITHIUM [Concomitant]
  9. METRONIDAZOLE [Concomitant]
  10. MORPHINE [Concomitant]
  11. PROMETHAZINE [Concomitant]
  12. VENLAFAXZINE [Concomitant]
  13. MILK OF MAGNESIA [Concomitant]
  14. MULTI-VITAMIN [Concomitant]

REACTIONS (5)
  - BACK PAIN [None]
  - DYSPNOEA [None]
  - FLUSHING [None]
  - HYPERHIDROSIS [None]
  - INFUSION RELATED REACTION [None]
